FAERS Safety Report 14419979 (Version 4)
Quarter: 2018Q4

REPORT INFORMATION
  Report Type: Spontaneous
  Country: SA (occurrence: SA)
  Receive Date: 20180122
  Receipt Date: 20181012
  Transmission Date: 20190204
  Serious: Yes (Hospitalization)
  Sender: FDA-Public Use
  Company Number: SA-PFIZER INC-2018024355

PATIENT
  Sex: Male
  Weight: 3.7 kg

DRUGS (3)
  1. ALPROSTADIL. [Suspect]
     Active Substance: ALPROSTADIL
     Indication: HEART DISEASE CONGENITAL
     Dosage: UNK, (0.05 MICROGRAM / KILOGRAM / MINUTE INFUSION) ON DAY 3
  2. ALPROSTADIL. [Suspect]
     Active Substance: ALPROSTADIL
     Dosage: UNK, 0.02 MICROGRAM/KILOGRAM / MINUTE (DAY 49)
  3. ALPROSTADIL. [Suspect]
     Active Substance: ALPROSTADIL
     Dosage: UNK, 0.04 MICROGRAM / KILOGRAM / MINUTE (ON DAY 15)

REACTIONS (1)
  - Exostosis [Not Recovered/Not Resolved]
